FAERS Safety Report 6709102-8 (Version None)
Quarter: 2010Q2

REPORT INFORMATION
  Report Type: 
  Country: None (occurrence: None)
  Receive Date: 20100504
  Receipt Date: 20100428
  Transmission Date: 20101027
  Serious: Yes (Other)
  Sender: FDA-Public Use
  Company Number: PR-BAYER-201020948NA

PATIENT
  Age: 63 Year
  Sex: Male

DRUGS (2)
  1. BETASERON [Suspect]
     Indication: MULTIPLE SCLEROSIS
     Route: 058
     Dates: start: 20090828, end: 20091214
  2. BETASERON [Suspect]
     Route: 058
     Dates: start: 20100110, end: 20100407

REACTIONS (4)
  - EYE SWELLING [None]
  - LIP SWELLING [None]
  - OEDEMA MOUTH [None]
  - SWELLING FACE [None]
